FAERS Safety Report 9426313 (Version 1)
Quarter: 2013Q3

REPORT INFORMATION
  Report Type: Spontaneous
  Country: FR (occurrence: FR)
  Receive Date: 20130730
  Receipt Date: 20130730
  Transmission Date: 20140515
  Serious: Yes (Death, Hospitalization, Other)
  Sender: FDA-Public Use
  Company Number: FR-BRISTOL-MYERS SQUIBB COMPANY-19141498

PATIENT
  Age: 80 Year
  Sex: 0

DRUGS (2)
  1. COUMADINE [Suspect]
     Indication: ATRIAL FIBRILLATION
     Route: 048
     Dates: end: 20130329
  2. KARDEGIC [Suspect]
     Dosage: POWDER
     Route: 048
     Dates: end: 20130329

REACTIONS (2)
  - Subdural haematoma [Fatal]
  - Fall [Unknown]
